FAERS Safety Report 8328173-9 (Version None)
Quarter: 2012Q2

REPORT INFORMATION
  Report Type: 
  Country: None (occurrence: None)
  Receive Date: 20120502
  Receipt Date: 20120420
  Transmission Date: 20120825
  Serious: Yes (Life-Threatening, Hospitalization, Other)
  Sender: FDA-Public Use
  Company Number: PT-PFIZER INC-2012104688

PATIENT
  Age: 54 Year
  Sex: Male

DRUGS (8)
  1. NEUPOGEN [Concomitant]
     Dosage: 300 UG, DAILY
     Route: 058
     Dates: start: 20120325
  2. ACYCLOVIR [Suspect]
     Indication: INFECTION
     Dosage: 2.4 G, DAILY
     Route: 048
     Dates: start: 20120327
  3. BACTRIM DS [Concomitant]
     Indication: PROPHYLAXIS
     Dosage: [TRIMETHOPRIM 800]/[SULFAMETHOXAZOLE 600MG]3 TIMES A WEEK
     Route: 048
     Dates: end: 20120321
  4. LEXOTAN [Concomitant]
     Indication: INSOMNIA
     Dosage: 3 MG, DAILY
     Dates: end: 20120321
  5. CORDARONE [Interacting]
     Indication: SUPRAVENTRICULAR TACHYARRHYTHMIA
     Dosage: 200 MG,DAILY
     Route: 048
     Dates: start: 20120321, end: 20120329
  6. FLUCONAZOLE [Suspect]
     Indication: INFECTION
     Dosage: 1 DF, DAILY
     Route: 048
     Dates: start: 20120301
  7. PANTOPRAZOLE [Concomitant]
     Indication: PROPHYLAXIS
     Dosage: 40 MG, DAILY
     Route: 048
     Dates: start: 20110615, end: 20120321
  8. MEROPENEM [Interacting]
     Indication: INFECTION
     Dosage: 2 G, DAILY
     Route: 042
     Dates: start: 20120201, end: 20120328

REACTIONS (3)
  - AGRANULOCYTOSIS [None]
  - DRUG INTERACTION [None]
  - LEUKOPENIA [None]
